FAERS Safety Report 4411721-9 (Version None)
Quarter: 2004Q3

REPORT INFORMATION
  Report Type: 
  Country: None (occurrence: None)
  Receive Date: 20040727
  Receipt Date: 20040714
  Transmission Date: 20050211
  Serious: Yes (Other)
  Sender: FDA-Public Use
  Company Number: GR-JNJFOC-20040703405

PATIENT
  Age: 42 Year
  Sex: Male
  Weight: 110 kg

DRUGS (4)
  1. REMICADE [Suspect]
     Indication: ANKYLOSING SPONDYLITIS
     Dosage: SEE IMAGE
     Route: 042
     Dates: start: 20040310, end: 20040310
  2. REMICADE [Suspect]
     Indication: ANKYLOSING SPONDYLITIS
     Dosage: SEE IMAGE
     Route: 042
     Dates: start: 20040324, end: 20040324
  3. REMICADE [Suspect]
     Indication: ANKYLOSING SPONDYLITIS
     Dosage: SEE IMAGE
     Route: 042
     Dates: start: 20040421, end: 20040421
  4. GLUCOPHAGE [Concomitant]

REACTIONS (1)
  - PSORIASIS [None]
